FAERS Safety Report 24889554 (Version 2)
Quarter: 2025Q2

REPORT INFORMATION
  Report Type: Report from Study
  Country: GB (occurrence: GB)
  Receive Date: 20250127
  Receipt Date: 20250620
  Transmission Date: 20250716
  Serious: Yes (Other)
  Sender: UCB
  Company Number: GB-UCBSA-2025004526

PATIENT
  Sex: Female

DRUGS (28)
  1. LEVETIRACETAM [Suspect]
     Active Substance: LEVETIRACETAM
     Indication: Epilepsy
  2. BRIVARACETAM [Suspect]
     Active Substance: BRIVARACETAM
     Indication: Epilepsy
  3. LACOSAMIDE [Suspect]
     Active Substance: LACOSAMIDE
     Indication: Epilepsy
  4. EPILIM [Concomitant]
     Active Substance: VALPROATE SODIUM
     Indication: Epilepsy
  5. ESLICARBAZEPINE [Concomitant]
     Active Substance: ESLICARBAZEPINE
     Indication: Epilepsy
  6. ETHOSUXIMIDE [Concomitant]
     Active Substance: ETHOSUXIMIDE
     Indication: Epilepsy
  7. FELBAMATE [Concomitant]
     Active Substance: FELBAMATE
     Indication: Epilepsy
  8. METHSUXIMIDE [Concomitant]
     Active Substance: METHSUXIMIDE
     Indication: Epilepsy
  9. OXCARBAZEPINE [Concomitant]
     Active Substance: OXCARBAZEPINE
     Indication: Epilepsy
  10. PERAMPANEL [Concomitant]
     Active Substance: PERAMPANEL
     Indication: Epilepsy
  11. PHENOBARBITAL [Concomitant]
     Active Substance: PHENOBARBITAL
     Indication: Epilepsy
  12. PHENYTOIN [Concomitant]
     Active Substance: PHENYTOIN
     Indication: Epilepsy
  13. EZOGABINE [Concomitant]
     Active Substance: EZOGABINE
     Indication: Epilepsy
  14. RUFINAMIDE [Concomitant]
     Active Substance: RUFINAMIDE
     Indication: Epilepsy
  15. STIRIPENTOL [Concomitant]
     Active Substance: STIRIPENTOL
     Indication: Epilepsy
  16. SULTHIAME [Concomitant]
     Active Substance: SULTHIAME
     Indication: Epilepsy
  17. TIAGABINE [Concomitant]
     Active Substance: TIAGABINE
     Indication: Epilepsy
  18. VIGABATRIN [Concomitant]
     Active Substance: VIGABATRIN
     Indication: Epilepsy
  19. ZONISAMIDE [Concomitant]
     Active Substance: ZONISAMIDE
     Indication: Epilepsy
  20. CLOBAZAM [Concomitant]
     Active Substance: CLOBAZAM
     Indication: Epilepsy
  21. DIAZEPAM [Concomitant]
     Active Substance: DIAZEPAM
     Indication: Epilepsy
     Route: 054
  22. MIDAZOLAM [Concomitant]
     Active Substance: MIDAZOLAM
     Indication: Epilepsy
     Route: 045
  23. QUETIAPINE [Concomitant]
     Active Substance: QUETIAPINE
     Indication: Affective disorder
  24. LITHIUM [Concomitant]
     Active Substance: LITHIUM
     Indication: Affective disorder
  25. VALPROATE [Concomitant]
     Active Substance: VALPROIC ACID
     Indication: Affective disorder
  26. LAMOTRIGINE [Concomitant]
     Active Substance: LAMOTRIGINE
     Indication: Affective disorder
  27. CARBAMAZEPINE [Concomitant]
     Active Substance: CARBAMAZEPINE
     Indication: Affective disorder
  28. DEPAKOTE [Concomitant]
     Active Substance: DIVALPROEX SODIUM
     Indication: Affective disorder

REACTIONS (2)
  - Abortion spontaneous [Unknown]
  - Maternal exposure during pregnancy [Unknown]
